FAERS Safety Report 7128107-9 (Version None)
Quarter: 2010Q4

REPORT INFORMATION
  Report Type: 
  Country: None (occurrence: None)
  Receive Date: 20101130
  Receipt Date: 20101122
  Transmission Date: 20110411
  Serious: Yes (Life-Threatening, Hospitalization, Disabling, Other)
  Sender: FDA-Public Use
  Company Number: US-BRISTOL-MYERS SQUIBB COMPANY-15401094

PATIENT
  Age: 66 Year
  Sex: Female

DRUGS (6)
  1. COUMADIN [Suspect]
     Indication: PULMONARY EMBOLISM
     Route: 065
     Dates: start: 20090827
  2. NORVASC [Concomitant]
     Dates: start: 20090805
  3. CALCIUM [Concomitant]
     Dates: start: 20090805
  4. PRILOSEC [Concomitant]
     Dates: start: 20080509
  5. LYRICA [Concomitant]
     Dates: start: 20100104
  6. ALDACTONE [Concomitant]
     Dates: start: 20080509

REACTIONS (1)
  - PULMONARY EMBOLISM [None]
